FAERS Safety Report 9712901 (Version 1)
Quarter: 2013Q4

REPORT INFORMATION
  Report Type: Report from Study
  Country: US (occurrence: US)
  Receive Date: 20131126
  Receipt Date: 20131126
  Transmission Date: 20140711
  Serious: Yes (Hospitalization, Other)
  Sender: FDA-Public Use
  Company Number: US-TAKEDA-2013TUS002459

PATIENT
  Sex: 0

DRUGS (7)
  1. COLCRYS [Suspect]
     Indication: GOUT
     Dosage: 0.6 MG, QD
     Route: 048
     Dates: start: 20130313, end: 20130809
  2. COLCRYS [Suspect]
     Dosage: UNK
     Dates: start: 20130816
  3. FEBUXOSTAT [Suspect]
     Indication: GOUT
     Dosage: 80 MG, QD
     Route: 048
     Dates: start: 20130313
  4. TRAMADOL [Concomitant]
  5. LISINOPRIL [Concomitant]
  6. HYDROCHLOROTHIAZIDE [Concomitant]
  7. NORVASC [Concomitant]

REACTIONS (5)
  - Renal failure acute [Recovered/Resolved]
  - Dizziness [Unknown]
  - Dehydration [Unknown]
  - Orthostatic hypotension [Unknown]
  - Diarrhoea [Unknown]
